FAERS Safety Report 7108533-4 (Version None)
Quarter: 2010Q4

REPORT INFORMATION
  Report Type: 
  Country: None (occurrence: None)
  Receive Date: 20101117
  Receipt Date: 20100813
  Transmission Date: 20110411
  Serious: No
  Sender: FDA-Public Use
  Company Number: A0876863A

PATIENT
  Sex: Male

DRUGS (1)
  1. VOTRIENT [Suspect]
     Dosage: 800MG PER DAY
     Route: 048
     Dates: start: 20100601

REACTIONS (7)
  - DECREASED APPETITE [None]
  - DIARRHOEA [None]
  - HAIR COLOUR CHANGES [None]
  - HYPOTENSION [None]
  - NAUSEA [None]
  - TACHYCARDIA [None]
  - WEIGHT DECREASED [None]
